FAERS Safety Report 7241812-9 (Version None)
Quarter: 2011Q1

REPORT INFORMATION
  Report Type: 
  Country: None (occurrence: None)
  Receive Date: 20110124
  Receipt Date: 20110118
  Transmission Date: 20110831
  Serious: Yes (Other)
  Sender: FDA-Public Use
  Company Number: US-ABBOTT-10P-163-0687508-00

PATIENT
  Sex: Female
  Weight: 81.72 kg

DRUGS (6)
  1. PONSTEL [Concomitant]
     Indication: DYSMENORRHOEA
     Dosage: 2-3 PILLS A MONTH
  2. HUMIRA [Suspect]
     Indication: RHEUMATOID ARTHRITIS
     Dates: start: 20091101, end: 20100907
  3. HUMIRA [Suspect]
     Dates: start: 20101019
  4. LUCOVORIN [Concomitant]
     Indication: ADVERSE DRUG REACTION
  5. METHOTREXATE [Concomitant]
     Indication: RHEUMATOID ARTHRITIS
  6. FOLIC ACID [Concomitant]
     Indication: VITAMIN SUPPLEMENTATION

REACTIONS (7)
  - HIP DYSPLASIA [None]
  - INJECTION SITE HAEMATOMA [None]
  - CARTILAGE INJURY [None]
  - INJECTION SITE PRURITUS [None]
  - INJECTION SITE SWELLING [None]
  - DIZZINESS [None]
  - PROCEDURAL PAIN [None]
